FAERS Safety Report 15485638 (Version 7)
Quarter: 2019Q2

REPORT INFORMATION
  Report Type: Report from Study
  Country: BR (occurrence: BR)
  Receive Date: 20181010
  Receipt Date: 20190422
  Transmission Date: 20190711
  Serious: Yes (Death, Hospitalization, Other)
  Sender: FDA-Public Use
  Company Number: PHHY2018BR068137

PATIENT
  Age: 27 Year
  Sex: Male
  Weight: 70 kg

DRUGS (3)
  1. VOTRIENT [Suspect]
     Active Substance: PAZOPANIB HYDROCHLORIDE
     Dosage: 400 MG, Q12H
     Route: 048
     Dates: start: 20180731
  2. VOTRIENT [Suspect]
     Active Substance: PAZOPANIB HYDROCHLORIDE
     Indication: METASTATIC RENAL CELL CARCINOMA
     Dosage: 600 MG, QD
     Route: 048
     Dates: start: 201807
  3. VOTRIENT [Suspect]
     Active Substance: PAZOPANIB HYDROCHLORIDE
     Dosage: 800 MG, QD (2 TABLETS (400 MG) IN MORNING)
     Route: 048
     Dates: start: 201807, end: 201902

REACTIONS (30)
  - Malignant neoplasm progression [Fatal]
  - Malaise [Not Recovered/Not Resolved]
  - Skin disorder [Not Recovered/Not Resolved]
  - Burning sensation [Not Recovered/Not Resolved]
  - Intestinal obstruction [Not Recovered/Not Resolved]
  - Abdominal pain [Not Recovered/Not Resolved]
  - Decreased appetite [Not Recovered/Not Resolved]
  - Pain [Not Recovered/Not Resolved]
  - Feeling abnormal [Not Recovered/Not Resolved]
  - Skin depigmentation [Not Recovered/Not Resolved]
  - Asthenia [Not Recovered/Not Resolved]
  - Cancer pain [Not Recovered/Not Resolved]
  - Scrotal infection [Not Recovered/Not Resolved]
  - Insomnia [Not Recovered/Not Resolved]
  - Asthenia [Recovered/Resolved]
  - Pyrexia [Unknown]
  - Renal vein thrombosis [Not Recovered/Not Resolved]
  - Vomiting [Not Recovered/Not Resolved]
  - Metastases to spine [Not Recovered/Not Resolved]
  - Haematochezia [Unknown]
  - Vomiting [Recovered/Resolved]
  - Weight decreased [Not Recovered/Not Resolved]
  - Alopecia [Not Recovered/Not Resolved]
  - Renal cell carcinoma [Fatal]
  - Metastasis [Fatal]
  - Cough [Not Recovered/Not Resolved]
  - Hair colour changes [Not Recovered/Not Resolved]
  - Decreased immune responsiveness [Not Recovered/Not Resolved]
  - Bladder dilatation [Not Recovered/Not Resolved]
  - Heart rate abnormal [Not Recovered/Not Resolved]

NARRATIVE: CASE EVENT DATE: 20180701
